FAERS Safety Report 15921368 (Version 1)
Quarter: 2019Q1

REPORT INFORMATION
  Report Type: Spontaneous
  Country: US (occurrence: US)
  Receive Date: 20190115
  Receipt Date: 20190115
  Transmission Date: 20190417
  Serious: No
  Sender: FDA-Public Use
  Company Number: None

PATIENT
  Age: 37 Year

DRUGS (1)
  1. MAVYRET [Suspect]
     Active Substance: GLECAPREVIR\PIBRENTASVIR
     Indication: HEPATITIS B
     Route: 048
     Dates: start: 201812

REACTIONS (5)
  - Weight increased [None]
  - Chromaturia [None]
  - Nausea [None]
  - Fatigue [None]
  - Constipation [None]
